FAERS Safety Report 23950157 (Version 2)
Quarter: 2025Q1

REPORT INFORMATION
  Report Type: Spontaneous
  Country: CA (occurrence: CA)
  Receive Date: 20240607
  Receipt Date: 20250320
  Transmission Date: 20250409
  Serious: Yes (Hospitalization, Other)
  Sender: GLAXOSMITHKLINE
  Company Number: CA-GLAXOSMITHKLINE-CA2024AMR068658

PATIENT

DRUGS (31)
  1. LAMOTRIGINE [Suspect]
     Active Substance: LAMOTRIGINE
     Indication: Schizophrenia
     Route: 048
  2. LAMOTRIGINE [Suspect]
     Active Substance: LAMOTRIGINE
     Indication: Schizoaffective disorder
     Route: 065
  3. LAMOTRIGINE [Suspect]
     Active Substance: LAMOTRIGINE
     Indication: Mood altered
  4. LAMOTRIGINE [Suspect]
     Active Substance: LAMOTRIGINE
     Indication: Affective disorder
  5. ABILIFY [Suspect]
     Active Substance: ARIPIPRAZOLE
     Indication: Schizophrenia
  6. ABILIFY [Suspect]
     Active Substance: ARIPIPRAZOLE
     Indication: Schizoaffective disorder
  7. ARIPIPRAZOLE [Suspect]
     Active Substance: ARIPIPRAZOLE
     Indication: Schizophrenia
     Route: 048
  8. ARIPIPRAZOLE [Suspect]
     Active Substance: ARIPIPRAZOLE
     Indication: Schizoaffective disorder
     Route: 030
  9. BENZTROPINE MESYLATE [Suspect]
     Active Substance: BENZTROPINE MESYLATE
     Indication: Schizophrenia
  10. BENZTROPINE MESYLATE [Suspect]
     Active Substance: BENZTROPINE MESYLATE
     Indication: Schizoaffective disorder
  11. OLANZAPINE [Suspect]
     Active Substance: OLANZAPINE
     Indication: Schizophrenia
     Dosage: 5 MG, QD
     Route: 048
  12. OLANZAPINE [Suspect]
     Active Substance: OLANZAPINE
     Indication: Schizoaffective disorder
     Dosage: 10 MG, QD
     Route: 048
  13. OLANZAPINE [Suspect]
     Active Substance: OLANZAPINE
     Dosage: 15 MG, QD
     Route: 048
  14. OLANZAPINE [Suspect]
     Active Substance: OLANZAPINE
     Dosage: 1 DF, QD
     Route: 048
  15. QUETIAPINE FUMARATE [Suspect]
     Active Substance: QUETIAPINE FUMARATE
     Indication: Schizophrenia
     Dosage: 5 MG, QD
     Route: 048
  16. QUETIAPINE FUMARATE [Suspect]
     Active Substance: QUETIAPINE FUMARATE
     Indication: Schizoaffective disorder
     Route: 030
  17. RISPERIDONE [Suspect]
     Active Substance: RISPERIDONE
     Indication: Schizophrenia
     Route: 048
  18. RISPERIDONE [Suspect]
     Active Substance: RISPERIDONE
     Indication: Schizoaffective disorder
  19. VALPROIC ACID [Suspect]
     Active Substance: VALPROIC ACID
     Indication: Mood altered
  20. VALPROIC ACID [Suspect]
     Active Substance: VALPROIC ACID
     Indication: Schizoaffective disorder
  21. ZIPRASIDONE HYDROCHLORIDE [Suspect]
     Active Substance: ZIPRASIDONE HYDROCHLORIDE
     Indication: Product used for unknown indication
     Route: 065
  22. LITHIUM [Suspect]
     Active Substance: LITHIUM
     Indication: Schizophrenia
     Route: 065
  23. LITHIUM [Suspect]
     Active Substance: LITHIUM
     Indication: Mood altered
  24. LITHIUM [Suspect]
     Active Substance: LITHIUM
     Indication: Affective disorder
  25. LOXAPINE [Suspect]
     Active Substance: LOXAPINE
     Indication: Schizophrenia
     Dosage: 50 MG, QD
     Route: 065
  26. LOXAPINE [Suspect]
     Active Substance: LOXAPINE
     Indication: Schizoaffective disorder
     Route: 065
  27. RISPERIDONE [Suspect]
     Active Substance: RISPERIDONE
     Indication: Schizophrenia
     Route: 030
  28. RISPERIDONE [Suspect]
     Active Substance: RISPERIDONE
     Indication: Schizoaffective disorder
  29. RISPERDAL CONSTA [Suspect]
     Active Substance: RISPERIDONE
     Indication: Schizophrenia
     Route: 030
  30. RISPERDAL CONSTA [Suspect]
     Active Substance: RISPERIDONE
     Indication: Schizoaffective disorder
     Route: 030
  31. VALPROATE SODIUM [Concomitant]
     Active Substance: VALPROATE SODIUM
     Indication: Schizophrenia

REACTIONS (2)
  - Disease recurrence [Recovered/Resolved]
  - Oculogyric crisis [Recovered/Resolved]
